FAERS Safety Report 10997660 (Version 1)
Quarter: 2015Q2

REPORT INFORMATION
  Report Type: Spontaneous
  Country: US (occurrence: US)
  Receive Date: 20150408
  Receipt Date: 20150408
  Transmission Date: 20150821
  Serious: No
  Sender: FDA-Public Use
  Company Number: US-BANPHARM-20142969

PATIENT
  Age: 69 Year
  Sex: Female
  Weight: 80.29 kg

DRUGS (3)
  1. ALEVE [Suspect]
     Active Substance: NAPROXEN SODIUM
     Dosage: 1 DF, BID,
     Route: 048
     Dates: start: 2011
  2. DIABETES MEDICATION [Concomitant]
     Active Substance: UNSPECIFIED INGREDIENT
  3. INSULIN SHOTS [Concomitant]

REACTIONS (3)
  - Incorrect drug administration duration [Unknown]
  - Palpitations [Not Recovered/Not Resolved]
  - Feeling jittery [Recovered/Resolved]

NARRATIVE: CASE EVENT DATE: 2011
